FAERS Safety Report 20025166 (Version 1)
Quarter: 2021Q4

REPORT INFORMATION
  Report Type: Spontaneous
  Country: US (occurrence: US)
  Receive Date: 20211102
  Receipt Date: 20211102
  Transmission Date: 20220303
  Serious: Yes (Other)
  Sender: FDA-Public Use
  Company Number: US-GLAXOSMITHKLINE-USCH2021077134

PATIENT
  Age: 74 Year
  Sex: Female

DRUGS (1)
  1. ADVIL PM [Suspect]
     Active Substance: DIPHENHYDRAMINE CITRATE\IBUPROFEN
     Indication: Pain
     Dosage: UNK
     Dates: start: 20211028, end: 20211028

REACTIONS (12)
  - Choking [Recovered/Resolved]
  - Hallucination [Recovered/Resolved]
  - Vomiting [Unknown]
  - Chest pain [Unknown]
  - Paraesthesia [Unknown]
  - Dyspepsia [Unknown]
  - Pain in jaw [Unknown]
  - Nightmare [Unknown]
  - Odynophagia [Unknown]
  - Jaw clicking [Unknown]
  - Oropharyngeal pain [Recovered/Resolved]
  - Wrong technique in product usage process [Unknown]

NARRATIVE: CASE EVENT DATE: 20211028
